FAERS Safety Report 6355830-6 (Version None)
Quarter: 2009Q3

REPORT INFORMATION
  Report Type: 
  Country: None (occurrence: None)
  Receive Date: 20090915
  Receipt Date: 20090908
  Transmission Date: 20100115
  Serious: Yes (Other)
  Sender: FDA-Public Use
  Company Number: US-JNJFOC-20090903170

PATIENT
  Sex: Male

DRUGS (13)
  1. FENTANYL TRANSDERMAL SYSTEM [Suspect]
     Route: 062
  2. FENTANYL TRANSDERMAL SYSTEM [Suspect]
     Route: 062
  3. FENTANYL TRANSDERMAL SYSTEM [Suspect]
     Indication: BACK PAIN
     Route: 062
  4. FENTANYL [Suspect]
     Indication: BACK PAIN
     Route: 062
  5. INTELENCE [Concomitant]
     Indication: HIV INFECTION
     Route: 048
  6. ISENTRESS [Concomitant]
     Indication: HIV INFECTION
     Route: 048
  7. KALETRA [Concomitant]
     Indication: HIV INFECTION
     Route: 048
  8. CRESTOR [Concomitant]
     Indication: CARDIAC DISORDER
     Route: 048
  9. UNKNOWN MEDICATION [Concomitant]
     Indication: CARDIAC DISORDER
     Route: 048
  10. ASPIRIN [Concomitant]
     Indication: CARDIAC DISORDER
     Route: 048
  11. CYMBALTA [Concomitant]
     Indication: DEPRESSION
     Route: 048
  12. KLONOPIN [Concomitant]
     Indication: ANXIETY
     Route: 048
  13. ANDROGEL [Concomitant]
     Indication: BLOOD TESTOSTERONE DECREASED
     Route: 061

REACTIONS (7)
  - BLOOD CREATININE INCREASED [None]
  - BLOOD POTASSIUM DECREASED [None]
  - BLOOD SODIUM DECREASED [None]
  - BLOOD UREA INCREASED [None]
  - DRUG EFFECT DECREASED [None]
  - SOMNOLENCE [None]
  - WEIGHT INCREASED [None]
